FAERS Safety Report 26194584 (Version 1)
Quarter: 2025Q4

REPORT INFORMATION
  Report Type: Report from Study
  Country: ZA (occurrence: ZA)
  Receive Date: 20251224
  Receipt Date: 20251224
  Transmission Date: 20260117
  Serious: Yes (Hospitalization)
  Sender: REGENERON
  Company Number: ZA-BAYER-2025A018561

PATIENT
  Sex: Female

DRUGS (1)
  1. EYLEA [Suspect]
     Active Substance: AFLIBERCEPT
     Indication: Neovascular age-related macular degeneration
     Dosage: 1 VIAL PER EYE (LEFT EYE), SOLUTION FOR INJECTION
     Route: 031

REACTIONS (1)
  - Hospitalisation [Unknown]
